FAERS Safety Report 15346196 (Version 4)
Quarter: 2019Q1

REPORT INFORMATION
  Report Type: Report from Study
  Country: US (occurrence: US)
  Receive Date: 20180904
  Receipt Date: 20190106
  Transmission Date: 20190417
  Serious: No
  Sender: FDA-Public Use
  Company Number: US-AMGEN-USASP2018121094

PATIENT
  Age: 29 Year
  Sex: Female

DRUGS (3)
  1. ENBREL [Suspect]
     Active Substance: ETANERCEPT
     Indication: PSORIATIC ARTHROPATHY
  2. ENBREL [Suspect]
     Active Substance: ETANERCEPT
     Indication: SACROILIITIS
     Dosage: 50 MG, UNK
     Route: 065
     Dates: start: 201808
  3. ENBREL [Suspect]
     Active Substance: ETANERCEPT
     Indication: ANKYLOSING SPONDYLITIS

REACTIONS (13)
  - Fatigue [Unknown]
  - Urticaria [Recovered/Resolved]
  - Hormone level abnormal [Unknown]
  - Headache [Not Recovered/Not Resolved]
  - Asthma [Unknown]
  - Drug effect decreased [Unknown]
  - Asthenia [Unknown]
  - Back pain [Unknown]
  - Injection site pain [Unknown]
  - Dermatitis acneiform [Not Recovered/Not Resolved]
  - Pain [Unknown]
  - Blood pressure abnormal [Unknown]
  - Alopecia [Recovering/Resolving]

NARRATIVE: CASE EVENT DATE: 2018
